FAERS Safety Report 5320789-7 (Version None)
Quarter: 2007Q2

REPORT INFORMATION
  Report Type: 
  Country: None (occurrence: None)
  Receive Date: 20070507
  Receipt Date: 20070423
  Transmission Date: 20071010
  Serious: Yes (Death, Other)
  Sender: FDA-Public Use
  Company Number: MC200700359

PATIENT

DRUGS (3)
  1. ANGIOMAX [Suspect]
     Indication: HEPARIN-INDUCED THROMBOCYTOPENIA
     Dosage: SEE IMAGE
     Route: 042
  2. ARGATROBAN (ARGATROBAN) [Concomitant]
  3. LEPIRUDIN (LEPIRUDIN) [Concomitant]

REACTIONS (5)
  - EMBOLISM [None]
  - GASTROINTESTINAL HAEMORRHAGE [None]
  - HAEMORRHAGE [None]
  - ORGAN FAILURE [None]
  - THORACIC HAEMORRHAGE [None]
